FAERS Safety Report 21689670 (Version 3)
Quarter: 2023Q1

REPORT INFORMATION
  Report Type: Report from Study
  Country: HU (occurrence: HU)
  Receive Date: 20221206
  Receipt Date: 20230111
  Transmission Date: 20230417
  Serious: Yes (Hospitalization)
  Sender: FDA-Public Use
  Company Number: HU-ABBVIE-4224669

PATIENT
  Sex: Male

DRUGS (9)
  1. CARBIDOPA\LEVODOPA [Suspect]
     Active Substance: CARBIDOPA\LEVODOPA
     Indication: Parkinson^s disease
     Dosage: MORNING DOSE: 5. 0ML; CONTINUOUS DOSE: 3.5 ML/HOUR; EXTRA DOSE: 2.0 ML
     Route: 050
     Dates: start: 20221118
  2. CARBIDOPA\LEVODOPA [Suspect]
     Active Substance: CARBIDOPA\LEVODOPA
     Dosage: MORNING DOSE: 5.0 ML; CONTINUOUS DOSE: 4.3 ML/HOUR; EXTRA DOSE 2.0 ML
     Route: 050
     Dates: start: 20190711, end: 20221118
  3. ALPRAZOLAM [Concomitant]
     Active Substance: ALPRAZOLAM
     Indication: Product used for unknown indication
     Dosage: TIME INTERVAL: 0.33333333 DAYS: FORM STRENGTH: 0.5 MILLIGRAM?0.25MG; 0.25MG; 0.5 MG
     Route: 048
     Dates: start: 2017
  4. CLOPIDOGREL BISULFATE [Concomitant]
     Active Substance: CLOPIDOGREL BISULFATE
     Indication: Prophylaxis
     Dosage: FORM STRENGTH: 75 MILLIGRAM?1 TABLET IN THE MORNING
     Route: 048
     Dates: start: 2007
  5. VALSARTAN [Concomitant]
     Active Substance: VALSARTAN
     Indication: Product used for unknown indication
     Dosage: FORM STRENGTH: 80 MILLIGRAM?1 TABLET IN THE MORNING
     Route: 048
     Dates: start: 202211
  6. ROSUVASTATIN CALCIUM [Concomitant]
     Active Substance: ROSUVASTATIN CALCIUM
     Indication: Hyperlipidaemia
     Dosage: FORM STRENGTH: 20 MILLIGRAM?1 TABLET IN THE EVENING
     Route: 048
     Dates: start: 2022
  7. CLOZAPINE [Concomitant]
     Active Substance: CLOZAPINE
     Indication: Manic symptom
     Dosage: FORM STRENGTH: 25 MILLIGRAM?25 MG IN THE EVENING
     Route: 048
     Dates: start: 201908
  8. MIRVEDOL [Concomitant]
     Indication: Product used for unknown indication
     Dosage: 20 MILLIGRAM.?MORNING: 10 MG; EVENING: 10 MG
     Route: 048
     Dates: start: 202211
  9. FENOFIBRATE [Concomitant]
     Active Substance: FENOFIBRATE
     Indication: Hyperlipidaemia
     Dosage: FORM STRENGTH: 160 MILLIGRAM?1 TABLET IN THE MORNING
     Route: 048
     Dates: start: 2007

REACTIONS (8)
  - General physical health deterioration [Not Recovered/Not Resolved]
  - Gait disturbance [Not Recovered/Not Resolved]
  - Hyperkinesia [Not Recovered/Not Resolved]
  - Movement disorder [Not Recovered/Not Resolved]
  - Freezing phenomenon [Not Recovered/Not Resolved]
  - Blood pressure fluctuation [Unknown]
  - Fall [Not Recovered/Not Resolved]
  - Urinary hesitation [Not Recovered/Not Resolved]

NARRATIVE: CASE EVENT DATE: 20220101
